FAERS Safety Report 25032566 (Version 4)
Quarter: 2025Q2

REPORT INFORMATION
  Report Type: Spontaneous
  Country: JP (occurrence: JP)
  Receive Date: 20250303
  Receipt Date: 20250527
  Transmission Date: 20250717
  Serious: Yes (Hospitalization)
  Sender: JAZZ
  Company Number: JP-JAZZ PHARMACEUTICALS-2024-JP-023609

PATIENT
  Age: 13 Year
  Sex: Male

DRUGS (3)
  1. VYXEOS [Suspect]
     Active Substance: CYTARABINE\DAUNORUBICIN
     Indication: Acute myeloid leukaemia
     Route: 042
     Dates: start: 20241202, end: 202501
  2. VYXEOS [Suspect]
     Active Substance: CYTARABINE\DAUNORUBICIN
     Route: 042
     Dates: start: 20241205, end: 20250207
  3. VYXEOS [Suspect]
     Active Substance: CYTARABINE\DAUNORUBICIN
     Route: 042
     Dates: start: 20250106, end: 20250207

REACTIONS (9)
  - Guillain-Barre syndrome [Not Recovered/Not Resolved]
  - Monoplegia [Not Recovered/Not Resolved]
  - Osteomyelitis [Unknown]
  - Decreased immune responsiveness [Unknown]
  - Inappropriate antidiuretic hormone secretion [Recovered/Resolved]
  - Blood creatinine increased [Recovered/Resolved]
  - Purpura [Recovered/Resolved]
  - Pyrexia [Recovering/Resolving]
  - Venoocclusive liver disease [Not Recovered/Not Resolved]

NARRATIVE: CASE EVENT DATE: 20241204
